FAERS Safety Report 7174292-2 (Version None)
Quarter: 2010Q4

REPORT INFORMATION
  Report Type: 
  Country: None (occurrence: None)
  Receive Date: 20101219
  Receipt Date: 20100323
  Transmission Date: 20110411
  Serious: No
  Sender: FDA-Public Use
  Company Number: US-AMGEN-KDL399634

PATIENT

DRUGS (3)
  1. ENBREL [Suspect]
     Indication: RHEUMATOID ARTHRITIS
     Dosage: 25 MG, 2 TIMES/WK
     Route: 058
     Dates: start: 20040101
  2. METHOTREXATE [Concomitant]
     Dosage: 2.5 MG, 3 TIMES/WK
     Route: 048
     Dates: start: 20031101
  3. FOLIC ACID [Concomitant]
     Dosage: UNK UNK, UNK
     Dates: start: 20031101

REACTIONS (2)
  - APHONIA [None]
  - UPPER RESPIRATORY TRACT INFECTION [None]
